FAERS Safety Report 7782810-6 (Version None)
Quarter: 2011Q3

REPORT INFORMATION
  Report Type: 
  Country: None (occurrence: None)
  Receive Date: 20110928
  Receipt Date: 20110923
  Transmission Date: 20111222
  Serious: Yes (Other)
  Sender: FDA-Public Use
  Company Number: US-PFIZER INC-2011173639

PATIENT
  Sex: Female
  Weight: 54 kg

DRUGS (10)
  1. LYRICA [Suspect]
     Indication: SYMPATHETIC NERVE INJURY
  2. SOMA [Concomitant]
     Indication: PAIN
     Dosage: 1, TWICE A DAY
     Route: 048
     Dates: start: 20110602
  3. NORCO [Concomitant]
     Indication: PAIN
     Dosage: 10/35, 1 TABLET EVERY 4-6 HOURS
     Route: 048
     Dates: start: 20110620
  4. LYRICA [Suspect]
     Indication: COMPLEX REGIONAL PAIN SYNDROME
     Dosage: 100 MG, 3X/DAY
     Route: 048
     Dates: start: 20110705, end: 20110729
  5. VITAMIN D [Concomitant]
     Dosage: UNK
  6. FISH OIL [Concomitant]
     Dosage: UNK
  7. LYRICA [Suspect]
     Indication: PAIN
  8. LYRICA [Suspect]
  9. MULTI-VITAMINS [Concomitant]
     Dosage: UNK
  10. LYRICA [Suspect]
     Indication: ILL-DEFINED DISORDER
     Dosage: 75 MG, 3X/DAY
     Route: 048
     Dates: start: 20110420, end: 20110704

REACTIONS (14)
  - MUSCULAR WEAKNESS [None]
  - DRY MOUTH [None]
  - DEPRESSED LEVEL OF CONSCIOUSNESS [None]
  - BALANCE DISORDER [None]
  - DRUG INTOLERANCE [None]
  - MOOD ALTERED [None]
  - DIZZINESS [None]
  - VISION BLURRED [None]
  - PAIN [None]
  - THIRST [None]
  - DYSPNOEA [None]
  - DISTURBANCE IN ATTENTION [None]
  - FALL [None]
  - OEDEMA PERIPHERAL [None]
